FAERS Safety Report 20508266 (Version 2)
Quarter: 2022Q3

REPORT INFORMATION
  Report Type: Report from Study
  Country: US (occurrence: US)
  Receive Date: 20220223
  Receipt Date: 20220720
  Transmission Date: 20221027
  Serious: Yes (Other)
  Sender: FDA-Public Use
  Company Number: US-BAYER-2022A026867

PATIENT
  Age: 59 Year
  Sex: Female
  Weight: 86.168 kg

DRUGS (4)
  1. GADOBUTROL [Suspect]
     Active Substance: GADOBUTROL
     Indication: Ocular discomfort
  2. SERTRALINE [Concomitant]
     Active Substance: SERTRALINE HYDROCHLORIDE
  3. ATENOLOL [Concomitant]
     Active Substance: ATENOLOL
  4. ASPIRIN [Concomitant]
     Active Substance: ASPIRIN

REACTIONS (4)
  - Gadolinium deposition disease [None]
  - Mitochondrial toxicity [None]
  - Nontherapeutic agent urine positive [None]
  - Cytokine increased [None]
